FAERS Safety Report 9396643 (Version 4)
Quarter: 2013Q4

REPORT INFORMATION
  Report Type: Spontaneous
  Country: US (occurrence: US)
  Receive Date: 20130711
  Receipt Date: 20131011
  Transmission Date: 20140711
  Serious: Yes (Hospitalization)
  Sender: FDA-Public Use
  Company Number: US-BIOGENIDEC-2013BI062109

PATIENT
  Sex: Female

DRUGS (1)
  1. TYSABRI [Suspect]
     Indication: MULTIPLE SCLEROSIS
     Route: 042
     Dates: start: 20130121

REACTIONS (5)
  - Abdominal pain upper [Recovered/Resolved]
  - Hypoaesthesia [Recovered/Resolved]
  - Influenza like illness [Recovered/Resolved]
  - Tooth infection [Recovered/Resolved]
  - Tooth fracture [Recovered/Resolved]
